FAERS Safety Report 5878086-7 (Version None)
Quarter: 2008Q3

REPORT INFORMATION
  Report Type: 
  Country: None (occurrence: None)
  Receive Date: 20080911
  Receipt Date: 20080903
  Transmission Date: 20090109
  Serious: Yes (Death)
  Sender: FDA-Public Use
  Company Number: JP-MERCK-0808USA03942

PATIENT
  Age: 57 Year
  Sex: Male

DRUGS (1)
  1. DECADRON [Suspect]
     Route: 065

REACTIONS (2)
  - DRUG INEFFECTIVE [None]
  - LANGERHANS' CELL GRANULOMATOSIS [None]
